FAERS Safety Report 4323314-2 (Version None)
Quarter: 2004Q1

REPORT INFORMATION
  Report Type: 
  Country: None (occurrence: None)
  Receive Date: 20040323
  Receipt Date: 20040323
  Transmission Date: 20041129
  Serious: Yes (Other)
  Sender: FDA-Public Use
  Company Number: None

PATIENT
  Age: 78 Year
  Sex: Male
  Weight: 51 kg

DRUGS (4)
  1. CORTISPORIN [Suspect]
     Indication: VISION BLURRED
     Dosage: 2 DROPS, TID BOTH EYE
     Dates: start: 20030917, end: 20030918
  2. GATIFLOXACIN [Concomitant]
  3. DM 10/GUAIFENSEN (ALC-F/SF) [Concomitant]
  4. DARBEPOETIN ALFA 200 MCG/ALBUMIN [Concomitant]

REACTIONS (1)
  - CONJUNCTIVAL HYPERAEMIA [None]
